FAERS Safety Report 6863763-1 (Version None)
Quarter: 2010Q3

REPORT INFORMATION
  Report Type: 
  Country: None (occurrence: None)
  Receive Date: 20100721
  Receipt Date: 20080404
  Transmission Date: 20110219
  Serious: Yes (Other)
  Sender: FDA-Public Use
  Company Number: US-PFIZER INC-2008022712

PATIENT
  Sex: Female

DRUGS (1)
  1. CHANTIX [Suspect]
     Indication: SMOKING CESSATION THERAPY
     Route: 048
     Dates: start: 20080227, end: 20080305

REACTIONS (5)
  - ANXIETY [None]
  - DEPRESSION [None]
  - HEADACHE [None]
  - IRRITABILITY [None]
  - SUICIDAL IDEATION [None]
